FAERS Safety Report 9344690 (Version 2)
Quarter: 2013Q2

REPORT INFORMATION
  Report Type: Spontaneous
  Country: GB (occurrence: GB)
  Receive Date: 20130612
  Receipt Date: 20130612
  Transmission Date: 20140414
  Serious: Yes (Disabling, Other)
  Sender: FDA-Public Use
  Company Number: GB-ACTAVIS-2013-10631

PATIENT
  Age: 40 Year
  Sex: Female

DRUGS (4)
  1. BUPIVACAINE (UNKNOWN) [Suspect]
     Indication: SPINAL ANAESTHESIA
     Dosage: 2.8 ML BUPIVACAINE 0.5%
     Route: 050
     Dates: start: 20010122
  2. CHLORHEXIDINE GLUCONATE [Suspect]
     Indication: INFECTION PROPHYLAXIS
     Dosage: 0.5% CHLORHEXIDINE
     Route: 061
     Dates: start: 20010122
  3. LIDOCAINE HYDROCHLORIDE (WATSON LABORATORIES) [Suspect]
     Indication: SPINAL ANAESTHESIA
     Dosage: UNK
     Route: 050
     Dates: start: 20010122
  4. IODINE [Suspect]
     Indication: INFECTION PROPHYLAXIS
     Dosage: UNK
     Route: 061
     Dates: start: 20010122

REACTIONS (3)
  - Arachnoiditis [Not Recovered/Not Resolved]
  - Paraplegia [Not Recovered/Not Resolved]
  - Maternal exposure during delivery [Unknown]
